FAERS Safety Report 11829270 (Version 1)
Quarter: 2015Q4

REPORT INFORMATION
  Report Type: Spontaneous
  Country: US (occurrence: US)
  Receive Date: 20151211
  Receipt Date: 20151211
  Transmission Date: 20160305
  Serious: No
  Sender: FDA-Public Use
  Company Number: US-BAUSCH-BL-2015-012062

PATIENT
  Sex: Female

DRUGS (6)
  1. XENAZINE [Suspect]
     Active Substance: TETRABENAZINE
     Indication: DYSTONIA
     Dosage: 1 TABLET IN THE MORNING
     Route: 048
     Dates: start: 201407, end: 20150211
  2. XENAZINE [Suspect]
     Active Substance: TETRABENAZINE
     Dosage: 2 TABLETS IN THE MORNING
     Route: 048
     Dates: start: 201503
  3. XENAZINE [Suspect]
     Active Substance: TETRABENAZINE
     Dosage: 1 TABLET IN THE AFTERNOON
     Route: 048
     Dates: start: 201503
  4. XENAZINE [Suspect]
     Active Substance: TETRABENAZINE
     Dosage: 1 TABLET IN THE AFTERNOON
     Route: 048
     Dates: start: 201407, end: 20150211
  5. XENAZINE [Suspect]
     Active Substance: TETRABENAZINE
     Dosage: 2 TABLETS AT BEDTIME
     Route: 048
  6. XENAZINE [Suspect]
     Active Substance: TETRABENAZINE
     Dosage: 2 TABLETS AT BEDTIME
     Route: 048
     Dates: start: 201503

REACTIONS (3)
  - Intentional product use issue [Unknown]
  - Abdominal discomfort [Unknown]
  - Fatigue [Unknown]
